FAERS Safety Report 7032493-8 (Version None)
Quarter: 2010Q4

REPORT INFORMATION
  Report Type: 
  Country: None (occurrence: None)
  Receive Date: 20101007
  Receipt Date: 20100928
  Transmission Date: 20110411
  Serious: Yes (Hospitalization)
  Sender: FDA-Public Use
  Company Number: JP-ABBOTT-10P-087-0671379-00

PATIENT
  Sex: Male

DRUGS (3)
  1. LOPINAVIR/RITONAVIR [Suspect]
     Indication: HIV INFECTION
     Dates: start: 20040101
  2. DIDANOSINE [Suspect]
     Indication: HIV INFECTION
     Dates: start: 20040101
  3. EFAVIRENZ [Suspect]
     Indication: HIV INFECTION
     Dates: start: 20040101

REACTIONS (2)
  - GLOMERULONEPHRITIS MEMBRANOUS [None]
  - IMMUNE RECONSTITUTION SYNDROME [None]
